FAERS Safety Report 25177591 (Version 1)
Quarter: 2025Q2

REPORT INFORMATION
  Report Type: Spontaneous
  Country: IN (occurrence: IN)
  Receive Date: 20250409
  Receipt Date: 20250409
  Transmission Date: 20250716
  Serious: Yes (Other)
  Sender: ZYDUS PHARM
  Company Number: IN-CADILA HEALTHCARE LIMITED-IN-ZYDUS-121554

PATIENT

DRUGS (1)
  1. CLOPIDOGREL [Suspect]
     Active Substance: CLOPIDOGREL BISULFATE
     Indication: Product used for unknown indication
     Route: 065

REACTIONS (1)
  - Oesophagitis [Unknown]
